FAERS Safety Report 21307763 (Version 1)
Quarter: 2022Q3

REPORT INFORMATION
  Report Type: Spontaneous
  Country: US (occurrence: None)
  Receive Date: 20220907
  Receipt Date: 20220907
  Transmission Date: 20221027
  Serious: No
  Sender: FDA-Public Use
  Company Number: None

PATIENT
  Sex: Female
  Weight: 101.6 kg

DRUGS (15)
  1. IBRANCE [Suspect]
     Active Substance: PALBOCICLIB
     Indication: Colon cancer
     Dosage: FREQUENCY : DAILY;?
     Route: 048
     Dates: start: 202105, end: 202209
  2. ADVIL [Concomitant]
     Active Substance: IBUPROFEN
  3. ALLOPURINOL [Concomitant]
     Active Substance: ALLOPURINOL
  4. ASPIRIN [Concomitant]
     Active Substance: ASPIRIN
  5. CALCIUM\VITAMIN D [Concomitant]
     Active Substance: CALCIUM\VITAMIN D
  6. CARVEDILOL [Concomitant]
     Active Substance: CARVEDILOL
  7. CHONDROITIN SULFATE (BOVINE) [Concomitant]
     Active Substance: CHONDROITIN SULFATE (BOVINE)
  8. GABAPENTIN [Concomitant]
     Active Substance: GABAPENTIN
  9. GLUCOSAMINE [Concomitant]
     Active Substance: GLUCOSAMINE
  10. HYDROCHLOROTHIAZIDE [Concomitant]
     Active Substance: HYDROCHLOROTHIAZIDE
  11. LEVOTHYROXINE [Concomitant]
     Active Substance: LEVOTHYROXINE
  12. Lisinoprll [Concomitant]
  13. Multivitamins/Fluoride [Concomitant]
  14. OMEGA-3 FATTY ACIDS [Concomitant]
     Active Substance: OMEGA-3 FATTY ACIDS
  15. OMEPRAZOLE [Concomitant]
     Active Substance: OMEPRAZOLE

REACTIONS (2)
  - Disease progression [None]
  - Therapy interrupted [None]
